FAERS Safety Report 5050941-X (Version None)
Quarter: 2006Q3

REPORT INFORMATION
  Report Type: 
  Country: None (occurrence: None)
  Receive Date: 20060710
  Receipt Date: 20060622
  Transmission Date: 20061208
  Serious: Yes (Other)
  Sender: FDA-Public Use
  Company Number: S06-CAN-02624-01

PATIENT
  Age: 28 Year
  Sex: Female

DRUGS (3)
  1. CELEXA [Suspect]
     Dosage: 200 MG ONCE
  2. CELEXA [Suspect]
     Dosage: 20 MG QD PO
     Route: 048
  3. WELLBUTRIN SR [Suspect]
     Dosage: 1500 MG ONCE

REACTIONS (3)
  - CONVULSION [None]
  - DRUG ABUSER [None]
  - INTENTIONAL OVERDOSE [None]
